FAERS Safety Report 5323330-8 (Version None)
Quarter: 2007Q1

REPORT INFORMATION
  Report Type: 
  Country: None (occurrence: None)
  Receive Date: 20070223
  Receipt Date: 20061102
  Transmission Date: 20070707
  Serious: Yes (Hospitalization)
  Sender: FDA-Public Use
  Company Number: WAES 0611USA01346

PATIENT
  Sex: Female

DRUGS (10)
  1. ZOCOR [Suspect]
     Indication: BLOOD CHOLESTEROL INCREASED
     Dosage: 20 MG/DAILY/PO
     Route: 048
     Dates: end: 20061025
  2. COREG [Concomitant]
  3. LASIX (FORSEMIDE SODIUM) [Concomitant]
  4. PEPCID [Concomitant]
  5. PLAVIX [Concomitant]
  6. SINGULAIR [Concomitant]
  7. (THERAPY UNSPECIFIED) [Concomitant]
  8. ASPIRIN [Concomitant]
  9. FOLIC ACID [Concomitant]
  10. IRON (UNSPECIFIED) [Concomitant]

REACTIONS (2)
  - ARTHRALGIA [None]
  - RHABDOMYOLYSIS [None]
